FAERS Safety Report 9563785 (Version 1)
Quarter: 2013Q3

REPORT INFORMATION
  Report Type: Spontaneous
  Country: US (occurrence: None)
  Receive Date: 20130926
  Receipt Date: 20130926
  Transmission Date: 20140515
  Serious: Yes (Life-Threatening, Other)
  Sender: FDA-Public Use
  Company Number: None

PATIENT
  Age: 49 Year
  Sex: Female
  Weight: 63.5 kg

DRUGS (1)
  1. GABAPENTIN [Suspect]
     Indication: NEURALGIA
     Dosage: TID CUT DOWN TO 1X A DAY
     Route: 048
     Dates: start: 20130617, end: 20130722

REACTIONS (4)
  - Respiratory distress [None]
  - Chest discomfort [None]
  - Rash macular [None]
  - Incorrect dose administered [None]
